FAERS Safety Report 5673137-7 (Version None)
Quarter: 2008Q1

REPORT INFORMATION
  Report Type: 
  Country: None (occurrence: None)
  Receive Date: 20080319
  Receipt Date: 20080311
  Transmission Date: 20080703
  Serious: Yes (Hospitalization)
  Sender: FDA-Public Use
  Company Number: FR-BRISTOL-MYERS SQUIBB COMPANY-14090062

PATIENT
  Age: 41 Year
  Sex: Male

DRUGS (3)
  1. HOLOXAN [Suspect]
     Indication: GERM CELL CANCER
     Route: 042
     Dates: start: 20080111, end: 20080115
  2. GEMZAR [Suspect]
     Indication: GERM CELL CANCER
     Dosage: INITIAL ADMINISTRATION: 11-JAN-2008
     Route: 042
     Dates: start: 20080111, end: 20080115
  3. CISPLATYL [Suspect]
     Indication: GERM CELL CANCER
     Route: 042
     Dates: start: 20080111, end: 20080115

REACTIONS (5)
  - ANAEMIA [None]
  - BRAIN ABSCESS [None]
  - FACIAL PALSY [None]
  - MYOCLONUS [None]
  - PARTIAL SEIZURES [None]
